FAERS Safety Report 20661541 (Version 15)
Quarter: 2023Q2

REPORT INFORMATION
  Report Type: Report from Study
  Country: US (occurrence: US)
  Receive Date: 20220401
  Receipt Date: 20230511
  Transmission Date: 20230722
  Serious: Yes (Hospitalization)
  Sender: FDA-Public Use
  Company Number: US-NOVARTISTESTPH-NVSC2022US073605

PATIENT
  Sex: Female
  Weight: 59.864 kg

DRUGS (8)
  1. TREPROSTINIL [Suspect]
     Active Substance: TREPROSTINIL
     Indication: Pulmonary arterial hypertension
     Dosage: 20 NG/KG/MIN, CONT
     Route: 042
     Dates: start: 20220316
  2. TREPROSTINIL [Suspect]
     Active Substance: TREPROSTINIL
     Dosage: 22 NG/KG/MIN, CONT
     Route: 042
  3. TREPROSTINIL [Suspect]
     Active Substance: TREPROSTINIL
     Dosage: 22 NG/KG/MIN, CONT
     Route: 042
  4. TREPROSTINIL [Suspect]
     Active Substance: TREPROSTINIL
     Dosage: 22 NG/KG/MIN, CONT
     Route: 042
  5. ELIQUIS [Concomitant]
     Active Substance: APIXABAN
     Indication: Product used for unknown indication
     Dosage: UNK
     Route: 065
  6. OPSUMIT [Concomitant]
     Active Substance: MACITENTAN
     Indication: Product used for unknown indication
     Dosage: UNK
     Route: 065
  7. SILDENAFIL CITRATE [Concomitant]
     Active Substance: SILDENAFIL CITRATE
     Indication: Product used for unknown indication
     Dosage: UNK
     Route: 065
  8. REVATIO [Concomitant]
     Active Substance: SILDENAFIL CITRATE
     Indication: Product used for unknown indication
     Dosage: UNK
     Route: 065

REACTIONS (15)
  - Fluid retention [Unknown]
  - Renal disorder [Unknown]
  - Hydronephrosis [Unknown]
  - Oxygen saturation decreased [Unknown]
  - Abdominal distension [Unknown]
  - Pulmonary oedema [Unknown]
  - Pericardial effusion [Unknown]
  - Dyspnoea [Unknown]
  - Abdominal pain upper [Unknown]
  - Flushing [Unknown]
  - Fear [Unknown]
  - Face oedema [Unknown]
  - Tremor [Unknown]
  - Secretion discharge [Unknown]
  - Oedema peripheral [Unknown]
